FAERS Safety Report 17830345 (Version 1)
Quarter: 2020Q2

REPORT INFORMATION
  Report Type: Spontaneous
  Country: DE (occurrence: DE)
  Receive Date: 20200527
  Receipt Date: 20200527
  Transmission Date: 20200714
  Serious: Yes (Hospitalization, Other)
  Sender: FDA-Public Use
  Company Number: NVSC2020DE137475

PATIENT
  Age: 54 Year
  Sex: Male
  Weight: 92 kg

DRUGS (12)
  1. VITAMIIN C [Concomitant]
     Active Substance: ASCORBIC ACID
     Indication: PRODUCT USED FOR UNKNOWN INDICATION
     Dosage: 2 DF, BID (500)
     Route: 065
  2. ARGININE [Concomitant]
     Active Substance: ARGININE
     Indication: PRODUCT USED FOR UNKNOWN INDICATION
     Dosage: 2 DF, BID
     Route: 065
  3. SPIOLTO RESPIMAT [Concomitant]
     Active Substance: OLODATEROL HYDROCHLORIDE\TIOTROPIUM BROMIDE MONOHYDRATE
     Indication: PRODUCT USED FOR UNKNOWN INDICATION
     Dosage: 5 MG, QD
     Route: 065
     Dates: start: 20180723
  4. OXYCODONE HYDROCHLORIDE. [Concomitant]
     Active Substance: OXYCODONE HYDROCHLORIDE
     Indication: PRODUCT USED FOR UNKNOWN INDICATION
     Dosage: 1 MG, QD (THREE TIMES A DAY)
     Route: 048
     Dates: start: 20180620
  5. OXYCODONE HYDROCHLORIDE. [Concomitant]
     Active Substance: OXYCODONE HYDROCHLORIDE
     Dosage: FOUR TIMES A DAY
     Route: 048
     Dates: start: 20190515
  6. MAGNESIUM [Concomitant]
     Active Substance: MAGNESIUM
     Indication: PRODUCT USED FOR UNKNOWN INDICATION
     Dosage: 3 DF, TID
     Route: 065
  7. MONTELUKAST [Concomitant]
     Active Substance: MONTELUKAST SODIUM
     Indication: PRODUCT USED FOR UNKNOWN INDICATION
     Dosage: 1 DF, QD
     Route: 048
     Dates: start: 20181017
  8. OXYCODON HCL RATIOPHARM [Concomitant]
     Indication: PRODUCT USED FOR UNKNOWN INDICATION
     Dosage: 4 DF (10 MG), QD (4 TIMES A DAY)
     Route: 048
     Dates: start: 20190515
  9. IBU [Concomitant]
     Active Substance: IBUPROFEN
     Indication: PRODUCT USED FOR UNKNOWN INDICATION
     Dosage: UNKNOWN
     Route: 065
  10. LIDOCAINE. [Concomitant]
     Active Substance: LIDOCAINE
     Indication: PRODUCT USED FOR UNKNOWN INDICATION
     Dosage: TWICE A WEEK (LIDOCAIN WITH NABIK 200/20)
     Route: 042
  11. PREDNISON [Concomitant]
     Active Substance: PREDNISONE
     Indication: BRONCHITIS
     Dosage: ONCE DAILY
     Route: 048
     Dates: start: 20180625, end: 20180704
  12. LEVOFLOXACIN. [Suspect]
     Active Substance: LEVOFLOXACIN
     Indication: BRONCHITIS
     Dosage: ONCE DAILY
     Route: 048
     Dates: start: 20180702, end: 20180711

REACTIONS (14)
  - Gait disturbance [Not Recovered/Not Resolved]
  - Sleep disorder [Not Recovered/Not Resolved]
  - Arthralgia [Not Recovered/Not Resolved]
  - Balance disorder [Not Recovered/Not Resolved]
  - Dizziness [Not Recovered/Not Resolved]
  - Asphyxia [Not Recovered/Not Resolved]
  - Asthma [Not Recovered/Not Resolved]
  - Hyperhidrosis [Not Recovered/Not Resolved]
  - Productive cough [Not Recovered/Not Resolved]
  - Respiratory distress [Not Recovered/Not Resolved]
  - Tinnitus [Not Recovered/Not Resolved]
  - Cough [Not Recovered/Not Resolved]
  - Tendon pain [Not Recovered/Not Resolved]
  - Muscle discomfort [Not Recovered/Not Resolved]

NARRATIVE: CASE EVENT DATE: 20180704
